FAERS Safety Report 7618517-5 (Version None)
Quarter: 2011Q3

REPORT INFORMATION
  Report Type: 
  Country: None (occurrence: None)
  Receive Date: 20110718
  Receipt Date: 20090930
  Transmission Date: 20111222
  Serious: Yes (Death, Other)
  Sender: FDA-Public Use
  Company Number: US-BAYER-200935095NA

PATIENT
  Age: 55 Year
  Weight: 77 kg

DRUGS (26)
  1. TRASYLOL [Suspect]
     Indication: TRICUSPID VALVE REPLACEMENT
  2. MIDAZOLAM HCL [Concomitant]
     Dosage: UNK
     Route: 042
     Dates: start: 20060515, end: 20060515
  3. TRASYLOL [Suspect]
     Indication: CARDIAC OPERATION
     Dosage: TEST DOSE - 1ML
     Route: 042
     Dates: start: 20060515, end: 20060515
  4. FENTANYL-100 [Concomitant]
     Dosage: UNK
     Route: 042
     Dates: start: 20060515, end: 20060515
  5. HEPARIN [Concomitant]
     Dosage: INTRAVENOUS
     Dates: start: 20060515, end: 20060515
  6. TRASYLOL [Suspect]
     Indication: AORTIC VALVE REPLACEMENT
     Dosage: LOADING DOSE - 200CC LOADING DOSE FOLLOWED BY 50CC/HR INFUSION
     Route: 042
     Dates: start: 20060515, end: 20060515
  7. CRESTOR [Concomitant]
     Dosage: UNK
     Route: 048
     Dates: start: 20060421
  8. METOPROLOL TARTRATE [Concomitant]
     Dosage: UNK
     Route: 048
     Dates: start: 20060501
  9. DOPAMINE HCL [Concomitant]
     Dosage: UNK
     Route: 042
     Dates: start: 20060513
  10. DOPAMINE HCL [Concomitant]
     Dosage: UNK
     Route: 042
     Dates: start: 20060515, end: 20060515
  11. LASIX [Concomitant]
     Route: 042
  12. LASIX [Concomitant]
     Route: 048
  13. COUMADIN [Concomitant]
     Dosage: UNK
     Route: 048
  14. MILRINONE [Concomitant]
     Dosage: UNK
     Route: 042
     Dates: start: 20060515, end: 20060515
  15. VASOPRESSIN [Concomitant]
     Dosage: UNK
     Dates: start: 20060515
  16. MANNITOL [Concomitant]
     Dosage: UNK
     Route: 042
     Dates: start: 20060515, end: 20060515
  17. NITROGLYCERIN [Concomitant]
     Dosage: UNK
     Route: 061
     Dates: start: 20060421
  18. HEPARIN [Concomitant]
     Dosage: IRRIGATION
     Dates: start: 20060515, end: 20060515
  19. VANCOMYCIN [Concomitant]
     Dosage: UNK
     Route: 061
     Dates: start: 20060515, end: 20060515
  20. VANCOMYCIN [Concomitant]
     Route: 042
  21. MORPHINE [Concomitant]
     Dosage: UNK
     Route: 042
     Dates: start: 20060515, end: 20060515
  22. TORSEMIDE [Concomitant]
  23. HEPARIN [Concomitant]
  24. METHYLPREDNISOLONE [Concomitant]
     Dosage: UNK
     Route: 042
     Dates: start: 20060515, end: 20060515
  25. LOVENOX [Concomitant]
     Dosage: UNK
     Route: 058
     Dates: start: 20060421
  26. NITROSTAT [Concomitant]
     Dosage: UNK
     Route: 060
     Dates: start: 20060421

REACTIONS (5)
  - INJURY [None]
  - EMOTIONAL DISTRESS [None]
  - DEATH [None]
  - RENAL FAILURE [None]
  - ANXIETY [None]
